FAERS Safety Report 8955606 (Version 2)
Quarter: 2013Q1

REPORT INFORMATION
  Report Type: Spontaneous
  Country: GR (occurrence: GR)
  Receive Date: 20121207
  Receipt Date: 20130102
  Transmission Date: 20140127
  Serious: Yes (Death, Hospitalization)
  Sender: FDA-Public Use
  Company Number: GR-CELGENEUS-066-20785-12113914

PATIENT
  Sex: Male

DRUGS (13)
  1. THALIDOMIDE [Suspect]
     Indication: PLASMA CELL MYELOMA
     Dosage: 400 MILLIGRAM
     Route: 048
     Dates: start: 20120313
  2. THALIDOMIDE [Suspect]
     Dosage: 200 MILLIGRAM
     Route: 048
     Dates: start: 201204
  3. THALIDOMIDE [Suspect]
     Dosage: 100 MILLIGRAM
     Route: 048
     Dates: start: 201207
  4. THALIDOMIDE [Suspect]
     Route: 048
     Dates: end: 20120829
  5. REVLIMID [Suspect]
     Indication: PLASMA CELL MYELOMA
     Dosage: 25 MILLIGRAM
     Route: 048
     Dates: start: 20100114
  6. REVLIMID [Suspect]
     Dosage: 10 MILLIGRAM
     Route: 048
     Dates: start: 201109
  7. REVLIMID [Suspect]
     Dosage: 25 MILLIGRAM
     Route: 048
     Dates: start: 201112
  8. REVLIMID [Suspect]
     Dosage: 25 MILLIGRAM
     Route: 048
     Dates: start: 20120102
  9. DEXAMETHASONE [Concomitant]
     Indication: PLASMA CELL MYELOMA
     Route: 065
  10. PLATINE [Concomitant]
     Indication: PLASMA CELL MYELOMA
     Route: 065
  11. ADRIAMYCIN [Concomitant]
     Indication: PLASMA CELL MYELOMA
     Route: 065
  12. CYCLOPHOSPHAMIDE [Concomitant]
     Indication: PLASMA CELL MYELOMA
     Route: 065
  13. ETOPOSIDE [Concomitant]
     Indication: PLASMA CELL MYELOMA
     Route: 065

REACTIONS (2)
  - Plasma cell myeloma [Fatal]
  - Anaemia [Unknown]
